FAERS Safety Report 5533696-1 (Version None)
Quarter: 2007Q4

REPORT INFORMATION
  Report Type: 
  Country: None (occurrence: None)
  Receive Date: 20071204
  Receipt Date: 20071129
  Transmission Date: 20080405
  Serious: Yes (Death, Life-Threatening, Hospitalization, Other)
  Sender: FDA-Public Use
  Company Number: GB-ABBOTT-07P-167-0367220-00

PATIENT
  Sex: Female
  Weight: 55 kg

DRUGS (12)
  1. HUMIRA [Suspect]
     Indication: RHEUMATOID ARTHRITIS
     Route: 058
     Dates: start: 20041004, end: 20070412
  2. PREDNISOLONE [Concomitant]
     Indication: RHEUMATOID ARTHRITIS
     Route: 048
  3. PREDNISOLONE [Concomitant]
     Route: 048
  4. PARACETAMOL [Concomitant]
     Indication: RHEUMATOID ARTHRITIS
     Route: 048
  5. RISEDRONATE SODIUM [Concomitant]
     Indication: OSTEOPOROSIS
     Route: 048
  6. RISEDRONATE SODIUM [Concomitant]
     Indication: RHEUMATOID ARTHRITIS
  7. MESALAMINE [Concomitant]
     Indication: COLITIS
     Route: 048
     Dates: start: 20050701
  8. MESALAMINE [Concomitant]
     Indication: RHEUMATOID ARTHRITIS
  9. LEKOVIT CA [Concomitant]
     Indication: DRUG USE FOR UNKNOWN INDICATION
  10. PARAMOL-118 [Concomitant]
     Indication: DRUG USE FOR UNKNOWN INDICATION
  11. PLANTAGO OVATA HUSK [Concomitant]
     Indication: DRUG USE FOR UNKNOWN INDICATION
  12. NAPROXEN [Concomitant]
     Indication: DRUG USE FOR UNKNOWN INDICATION

REACTIONS (3)
  - BREAST CANCER [None]
  - HAEMOPTYSIS [None]
  - NON-SMALL CELL LUNG CANCER [None]
